FAERS Safety Report 8063773-5 (Version None)
Quarter: 2012Q1

REPORT INFORMATION
  Report Type: 
  Country: None (occurrence: None)
  Receive Date: 20120123
  Receipt Date: 20120111
  Transmission Date: 20120608
  Serious: Yes (Hospitalization, Disabling, Other)
  Sender: FDA-Public Use
  Company Number: US-MERCK-1004USA01262

PATIENT
  Age: 58 Year
  Sex: Female
  Weight: 76 kg

DRUGS (12)
  1. ASPIRIN [Concomitant]
     Route: 065
  2. FOSAMAX [Suspect]
     Indication: OSTEOPOROSIS
     Route: 048
     Dates: start: 20020101, end: 20080101
  3. ALENDRONATE SODIUM [Suspect]
     Indication: OSTEOPENIA
     Route: 048
     Dates: start: 20080501, end: 20091201
  4. ALENDRONATE SODIUM [Suspect]
     Indication: OSTEOPOROSIS
     Route: 048
     Dates: start: 20080501, end: 20091201
  5. VITAMINS (UNSPECIFIED) [Concomitant]
     Route: 065
     Dates: start: 20050101
  6. METOPROLOL SUCCINATE [Concomitant]
     Indication: ESSENTIAL HYPERTENSION
     Route: 065
  7. ALENDRONATE SODIUM [Suspect]
     Route: 048
     Dates: start: 20091208, end: 20100301
  8. CALCIUM (UNSPECIFIED) AND VITAMIN D (UNSPECIFIED) [Concomitant]
     Route: 065
     Dates: start: 20050101
  9. FOSAMAX [Suspect]
     Indication: OSTEOPENIA
     Route: 048
     Dates: start: 20020101, end: 20080101
  10. LIPITOR [Concomitant]
     Indication: HYPERLIPIDAEMIA
     Route: 065
  11. HYDROCHLOROTHIAZIDE [Concomitant]
     Indication: ESSENTIAL HYPERTENSION
     Route: 048
  12. ALENDRONATE SODIUM [Suspect]
     Route: 048
     Dates: start: 20091208, end: 20100301

REACTIONS (12)
  - LOW TURNOVER OSTEOPATHY [None]
  - ARTHRALGIA [None]
  - RIB FRACTURE [None]
  - LARYNGEAL OEDEMA [None]
  - TEMPOROMANDIBULAR JOINT SYNDROME [None]
  - RHINITIS ALLERGIC [None]
  - FALL [None]
  - FEMUR FRACTURE [None]
  - LUNG NEOPLASM [None]
  - RADIUS FRACTURE [None]
  - ATROPHIC VULVOVAGINITIS [None]
  - DYSPHONIA [None]
